FAERS Safety Report 8510437-7 (Version None)
Quarter: 2012Q3

REPORT INFORMATION
  Report Type: 
  Country: None (occurrence: None)
  Receive Date: 20120714
  Receipt Date: 20120706
  Transmission Date: 20120928
  Serious: Yes (Disabling, Other)
  Sender: FDA-Public Use
  Company Number: US-TEVA-347774USA

PATIENT
  Sex: Female

DRUGS (2)
  1. SIMVASTATIN [Suspect]
     Indication: BLOOD CHOLESTEROL
  2. ZOCOR [Suspect]
     Indication: BLOOD CHOLESTEROL

REACTIONS (6)
  - RENAL DISORDER [None]
  - MUSCLE DISORDER [None]
  - INJURY [None]
  - PAIN [None]
  - ANHEDONIA [None]
  - EMOTIONAL DISTRESS [None]
